FAERS Safety Report 21899101 (Version 2)
Quarter: 2023Q1

REPORT INFORMATION
  Report Type: Spontaneous
  Country: SI (occurrence: SI)
  Receive Date: 20230123
  Receipt Date: 20230317
  Transmission Date: 20230418
  Serious: Yes (Hospitalization, Other)
  Sender: FDA-Public Use
  Company Number: SI-EMA-DD-20230113-7182749-125952

PATIENT
  Age: 74 Year
  Sex: Female

DRUGS (2)
  1. ASPIRIN [Interacting]
     Active Substance: ASPIRIN
     Indication: Antiplatelet therapy
     Dosage: UNK
  2. CLOPIDOGREL BISULFATE [Interacting]
     Active Substance: CLOPIDOGREL BISULFATE
     Indication: Antiplatelet therapy
     Dosage: UNK

REACTIONS (3)
  - Gastrointestinal haemorrhage [Unknown]
  - Melaena [Unknown]
  - Blood loss anaemia [Unknown]
